FAERS Safety Report 8383250 (Version 4)
Quarter: 2018Q3

REPORT INFORMATION
  Report Type: Report from Study
  Country: JP (occurrence: JP)
  Receive Date: 20120130
  Receipt Date: 20180904
  Transmission Date: 20181010
  Serious: Yes (Hospitalization, Other)
  Sender: FDA-Public Use
  Company Number: PHHY2010JP24029

PATIENT
  Age: 81 Year
  Sex: Female

DRUGS (9)
  1. TASIGNA [Suspect]
     Active Substance: NILOTINIB
     Indication: CHRONIC MYELOID LEUKAEMIA
     Dosage: 400 MG, BID
     Route: 048
     Dates: start: 20091228, end: 20100315
  2. METHYCOBAL [Concomitant]
     Active Substance: METHYLCOBALAMIN
     Indication: RENAL IMPAIRMENT
     Dosage: 150 UG, UNK
     Route: 048
  3. PREDONINE [Concomitant]
     Active Substance: PREDNISOLONE
     Indication: CHRONIC MYELOID LEUKAEMIA
     Dosage: 30 MG, UNK
     Route: 048
     Dates: start: 200605
  4. TAKEPRON [Concomitant]
     Active Substance: LANSOPRAZOLE
     Indication: PROPHYLAXIS
     Dosage: 15 MG
     Route: 065
     Dates: start: 20091228
  5. TASIGNA [Suspect]
     Active Substance: NILOTINIB
     Dosage: 400 MG, QD
     Route: 048
     Dates: start: 20100316
  6. ALENDRONATE SODIUM. [Concomitant]
     Active Substance: ALENDRONATE SODIUM
     Indication: PROPHYLAXIS
     Dosage: 35 MG
     Route: 048
     Dates: start: 20091228
  7. BIOFERMIN [Concomitant]
     Active Substance: BACILLUS SUBTILIS\LACTOBACILLUS ACIDOPHILUS\STREPTOCOCCUS FAECAIS
     Indication: RENAL IMPAIRMENT
     Dosage: 3 G, UNK
     Route: 048
  8. THYRADIN [Concomitant]
     Active Substance: LEVOTHYROXINE
     Indication: RENAL IMPAIRMENT
     Dosage: 50 UG, UNK
     Route: 048
  9. ALFAROL [Concomitant]
     Active Substance: ALFACALCIDOL
     Indication: PROPHYLAXIS
     Dosage: 1 UG, UNK
     Route: 048
     Dates: start: 20091228

REACTIONS (6)
  - Cardiac failure [Unknown]
  - Fluid retention [Recovered/Resolved]
  - Hyperglycaemia [Not Recovered/Not Resolved]
  - Pleural effusion [Unknown]
  - Anaemia [Not Recovered/Not Resolved]
  - Blood potassium increased [Recovering/Resolving]

NARRATIVE: CASE EVENT DATE: 20091228
